FAERS Safety Report 7914128-2 (Version None)
Quarter: 2011Q4

REPORT INFORMATION
  Report Type: 
  Country: None (occurrence: None)
  Receive Date: 20111114
  Receipt Date: 20111114
  Transmission Date: 20120403
  Serious: Yes (Other)
  Sender: FDA-Public Use
  Company Number: None

PATIENT
  Sex: Female

DRUGS (1)
  1. STELARA [Suspect]
     Indication: PSORIASIS
     Dosage: 45MG Q12 W SQ
     Route: 058
     Dates: start: 20110504, end: 20110818

REACTIONS (1)
  - UNEVALUABLE EVENT [None]
